FAERS Safety Report 5515728-X (Version None)
Quarter: 2007Q4

REPORT INFORMATION
  Report Type: 
  Country: None (occurrence: None)
  Receive Date: 20071114
  Receipt Date: 20071105
  Transmission Date: 20080405
  Serious: Yes (Hospitalization)
  Sender: FDA-Public Use
  Company Number: PHEH2007US08414

PATIENT
  Age: 41 Year
  Sex: Female
  Weight: 99.773 kg

DRUGS (22)
  1. AREDIA [Suspect]
     Indication: OSTEITIS DEFORMANS
     Dosage: 60 TO 90MG  Q2MOS
     Route: 042
     Dates: start: 20050101, end: 20061205
  2. CALCIUM [Concomitant]
     Indication: OSTEITIS DEFORMANS
     Dosage: 1000 MG, BID
     Route: 048
  3. LIPITOR [Concomitant]
     Dosage: 40 MG, QD
  4. LEUCOVORIN CALCIUM [Concomitant]
     Dosage: 10MG ALTERNATE DAYS
  5. LEVOTHYROXINE SODIUM [Concomitant]
     Indication: THYROID DISORDER
     Dosage: 200MCG QD
     Route: 048
  6. LEVOTHYROXINE SODIUM [Concomitant]
     Dosage: 175 MG, QD
     Route: 048
  7. METHOTREXATE [Concomitant]
     Indication: OSTEITIS DEFORMANS
     Dosage: 2.5MG QID ON MONDAY
  8. PREVACID [Concomitant]
     Dosage: 30 MG, QD
     Route: 048
  9. ATIVAN [Concomitant]
     Dosage: 1 MG, BID
     Route: 048
  10. ULTRACET [Concomitant]
     Indication: PAIN
     Dosage: 1 MG, TID
     Route: 048
  11. BENAZEPRIL HYDROCHLORIDE [Concomitant]
     Dosage: 10 MG, QD
  12. CALCITONIN-SALMON [Concomitant]
     Indication: OSTEITIS DEFORMANS
     Dosage: 200 U/ML TO 50 U/ML QOD
     Dates: start: 20050201, end: 20060920
  13. PREDNISONE [Concomitant]
  14. INSULIN [Concomitant]
  15. ZOMETA [Suspect]
  16. LASIX [Concomitant]
     Dosage: 40 MG, QD
     Route: 048
  17. PLAVIX [Concomitant]
     Dosage: 75 MG, QD
     Route: 048
  18. GLUCOPHAGE [Concomitant]
     Indication: DIABETES MELLITUS
     Dosage: UNK, QHS
     Route: 048
  19. DATRIUM [Concomitant]
     Dosage: 50 MG, TID
     Route: 048
  20. RISEDRONATE SODIUM [Concomitant]
     Dosage: 30 MG, QD
     Route: 048
  21. STEROIDS NOS [Concomitant]
     Indication: DERMATOMYOSITIS
     Dosage: 40 MG, QD
     Route: 048
     Dates: start: 20000101
  22. WELLBUTRIN [Concomitant]

REACTIONS (14)
  - ARTHRALGIA [None]
  - DENTAL CARIES [None]
  - ENDODONTIC PROCEDURE [None]
  - FACIAL PAIN [None]
  - HEMIPARESIS [None]
  - JAW DISORDER [None]
  - PAIN IN JAW [None]
  - SENSITIVITY OF TEETH [None]
  - SWELLING [None]
  - TOOTH ABSCESS [None]
  - TOOTH FRACTURE [None]
  - TOOTHACHE [None]
  - WOUND DEBRIDEMENT [None]
  - WOUND TREATMENT [None]
